FAERS Safety Report 10962063 (Version 1)
Quarter: 2015Q1

REPORT INFORMATION
  Report Type: Spontaneous
  Country: US (occurrence: US)
  Receive Date: 20150327
  Receipt Date: 20150327
  Transmission Date: 20150721
  Serious: No
  Sender: FDA-Public Use
  Company Number: US-PFIZER INC-2015090774

PATIENT
  Age: 67 Year
  Sex: Male
  Weight: 88.44 kg

DRUGS (2)
  1. AMLODIPINE BESILATE [Suspect]
     Active Substance: AMLODIPINE BESYLATE
     Dosage: UNK
  2. NORVASC [Suspect]
     Active Substance: AMLODIPINE BESYLATE
     Dosage: 5 MG, UNK

REACTIONS (3)
  - Dizziness [Unknown]
  - Head discomfort [Unknown]
  - Ocular discomfort [Unknown]
